FAERS Safety Report 9648197 (Version 4)
Quarter: 2014Q1

REPORT INFORMATION
  Report Type: Spontaneous
  Country: JP (occurrence: JP)
  Receive Date: 20131028
  Receipt Date: 20140114
  Transmission Date: 20141002
  Serious: Yes (Congenital Anomaly, Other)
  Sender: FDA-Public Use
  Company Number: PHHY2013JP120749

PATIENT
  Sex: Male
  Weight: 1.7 kg

DRUGS (1)
  1. EXFORGE [Suspect]
     Dosage: MATERNAL DOSE OF 1 DF DAILY, UNK
     Route: 064
     Dates: end: 20130806

REACTIONS (6)
  - Hypocalvaria [Unknown]
  - Renal tubular disorder [Unknown]
  - Premature baby [Unknown]
  - Low birth weight baby [Unknown]
  - Jaundice [Unknown]
  - Foetal exposure during pregnancy [Unknown]
